FAERS Safety Report 16776639 (Version 1)
Quarter: 2019Q3

REPORT INFORMATION
  Report Type: Report from Study
  Country: US (occurrence: US)
  Receive Date: 20190905
  Receipt Date: 20190905
  Transmission Date: 20191005
  Serious: Yes (Hospitalization, Other)
  Sender: FDA-Public Use
  Company Number: US-SA-2019SA238204

PATIENT
  Age: 66 Year
  Sex: Male

DRUGS (4)
  1. INSULIN GLARGINE [Suspect]
     Active Substance: INSULIN GLARGINE
     Dosage: 10-15UNITS , QD
  2. INSULIN GLARGINE [Suspect]
     Active Substance: INSULIN GLARGINE
     Dosage: 13-15 U
  3. INSULIN GLARGINE [Suspect]
     Active Substance: INSULIN GLARGINE
     Dosage: 25-30UNITS
  4. NOVOLOG [Concomitant]
     Active Substance: INSULIN ASPART

REACTIONS (7)
  - Diabetes mellitus inadequate control [Unknown]
  - Thyroidectomy [Unknown]
  - Limb discomfort [Unknown]
  - Product storage error [Unknown]
  - Blood glucose increased [Unknown]
  - Stenosis [Unknown]
  - Blood calcium increased [Unknown]
